FAERS Safety Report 9452721 (Version 2)
Quarter: 2013Q4

REPORT INFORMATION
  Report Type: Spontaneous
  Country: FR (occurrence: FR)
  Receive Date: 20130812
  Receipt Date: 20131016
  Transmission Date: 20140711
  Serious: Yes (Hospitalization)
  Sender: FDA-Public Use
  Company Number: PHHY2013FR085017

PATIENT
  Age: 55 Year
  Sex: Female

DRUGS (6)
  1. ACLASTA [Suspect]
     Indication: OSTEOPOROSIS
     Dosage: UNK
     Route: 042
     Dates: start: 20130802
  2. SOLUPRED [Concomitant]
     Indication: RHEUMATIC DISORDER
     Dosage: 40 MG, QD, DURING 5 DAYS THE PREVIOUS WEEK
  3. PLAQUENIL [Concomitant]
     Indication: RHEUMATIC DISORDER
     Dosage: UNK, BID
     Dates: start: 20130802, end: 20130802
  4. DOLIPRANE [Concomitant]
     Dosage: THE DAY BEFORE AND THE SAME DAY OF THE INJECTION
  5. CORTANCYL [Concomitant]
     Indication: RHEUMATIC DISORDER
     Dosage: 60 MG
     Route: 048
     Dates: start: 20130802, end: 20130802
  6. LOVAZA [Concomitant]
     Dosage: 400/200 MG

REACTIONS (12)
  - VIIth nerve paralysis [Recovered/Resolved]
  - Eye disorder [Unknown]
  - Hypoaesthesia [Unknown]
  - Paraesthesia oral [Recovered/Resolved]
  - Oral dysaesthesia [Recovered/Resolved]
  - Headache [Recovered/Resolved]
  - Vertigo [Recovered/Resolved]
  - Depressed mood [Unknown]
  - Malaise [Recovered/Resolved]
  - Nausea [Recovering/Resolving]
  - Fatigue [Recovering/Resolving]
  - Somnolence [Recovered/Resolved]
